FAERS Safety Report 4880226-3 (Version None)
Quarter: 2005Q4

REPORT INFORMATION
  Report Type: 
  Country: None (occurrence: None)
  Receive Date: 20051223
  Receipt Date: 20051024
  Transmission Date: 20060501
  Serious: No
  Sender: FDA-Public Use
  Company Number: 05P-163-0314856-00

PATIENT
  Age: 39 Year
  Sex: Female
  Weight: 70.3075 kg

DRUGS (9)
  1. HUMIRA [Suspect]
     Indication: RHEUMATOID ARTHRITIS
     Dosage: 40 MG, 1 IN 1 D, SUBCUTANEOUS
     Route: 058
     Dates: start: 20051002, end: 20051023
  2. CYCLOSPORINE [Concomitant]
  3. HYDROXYCHLOROQUINE PHOSPHATE [Concomitant]
  4. TRENTAL [Concomitant]
  5. MESALAMINE [Concomitant]
  6. PREDNISONE [Concomitant]
  7. VICODIN [Concomitant]
  8. PETHIDINE HYDROCHLORIDE [Concomitant]
  9. TRAMADOL HCL [Concomitant]

REACTIONS (6)
  - HEADACHE [None]
  - HYPOAESTHESIA [None]
  - INSOMNIA [None]
  - IRRITABILITY [None]
  - MOOD SWINGS [None]
  - PARAESTHESIA [None]
